FAERS Safety Report 6066452-9 (Version None)
Quarter: 2009Q1

REPORT INFORMATION
  Report Type: 
  Country: None (occurrence: None)
  Receive Date: 20090205
  Receipt Date: 20090127
  Transmission Date: 20090719
  Serious: Yes (Hospitalization)
  Sender: FDA-Public Use
  Company Number: US-BIOGENIDEC-2008BI027361

PATIENT
  Age: 52 Year
  Sex: Female
  Weight: 58 kg

DRUGS (7)
  1. TYSABRI [Suspect]
     Indication: MULTIPLE SCLEROSIS
     Route: 042
     Dates: start: 20070402, end: 20080925
  2. CYMBALTA [Concomitant]
  3. WELLBUTRIN XL [Concomitant]
  4. PROVIGIL [Concomitant]
  5. TRAZODONE HCL [Concomitant]
  6. KLONOPIN [Concomitant]
  7. MAXALT [Concomitant]

REACTIONS (7)
  - CHOLELITHIASIS [None]
  - HEADACHE [None]
  - HEPATIC ENZYME INCREASED [None]
  - MALAISE [None]
  - PANCYTOPENIA [None]
  - PYREXIA [None]
  - WHITE BLOOD CELL COUNT DECREASED [None]
